FAERS Safety Report 13705545 (Version 5)
Quarter: 2017Q3

REPORT INFORMATION
  Report Type: Report from Study
  Country: CO (occurrence: CO)
  Receive Date: 20170630
  Receipt Date: 20170802
  Transmission Date: 20171127
  Serious: Yes (Hospitalization)
  Sender: FDA-Public Use
  Company Number: PHHY2017CO096137

PATIENT
  Age: 52 Year
  Sex: Male
  Weight: 92 kg

DRUGS (5)
  1. RIBOSAN [Concomitant]
     Indication: PRODUCT USED FOR UNKNOWN INDICATION
     Route: 065
  2. ENTRESTO [Suspect]
     Active Substance: SACUBITRIL\VALSARTAN
     Indication: CARDIAC FAILURE
     Dosage: 50 MG, QD
     Route: 048
     Dates: start: 20170204
  3. FUROSEMIDE. [Concomitant]
     Active Substance: FUROSEMIDE
     Indication: PRODUCT USED FOR UNKNOWN INDICATION
     Dosage: UNK
     Route: 065
  4. ESOMEPRAZOLE [Suspect]
     Active Substance: ESOMEPRAZOLE
     Indication: PRODUCT USED FOR UNKNOWN INDICATION
     Route: 042
  5. ESOMEPRAZOLE [Concomitant]
     Active Substance: ESOMEPRAZOLE
     Indication: PRODUCT USED FOR UNKNOWN INDICATION
     Route: 065

REACTIONS (21)
  - Renal disorder [Unknown]
  - Dyspnoea [Unknown]
  - Peripheral swelling [Unknown]
  - Swelling [Unknown]
  - Fluid retention [Unknown]
  - Abdominal pain upper [Unknown]
  - Malaise [Unknown]
  - Cardiac disorder [Unknown]
  - Pain [Unknown]
  - Nephrolithiasis [Unknown]
  - Choking [Unknown]
  - Underdose [Unknown]
  - Chest pain [Unknown]
  - Urine output decreased [Unknown]
  - Hepatomegaly [Unknown]
  - Ejection fraction decreased [Unknown]
  - Hypotension [Unknown]
  - Arrhythmia [Unknown]
  - Inappropriate schedule of drug administration [Unknown]
  - Asthenia [Unknown]
  - Feeling abnormal [Unknown]

NARRATIVE: CASE EVENT DATE: 20170204
